FAERS Safety Report 20564880 (Version 1)
Quarter: 2022Q1

REPORT INFORMATION
  Report Type: Spontaneous
  Country: US (occurrence: US)
  Receive Date: 20220308
  Receipt Date: 20220308
  Transmission Date: 20220424
  Serious: No
  Sender: FDA-Public Use
  Company Number: US-ALLERGAN-2106920US

PATIENT
  Age: 75 Year
  Sex: Female

DRUGS (1)
  1. ESTRADIOL [Suspect]
     Active Substance: ESTRADIOL
     Indication: Hormone replacement therapy
     Dosage: PEA SIZE AMOUNT Q WEEK

REACTIONS (3)
  - Postmenopausal haemorrhage [Unknown]
  - Vaginal disorder [Unknown]
  - Vulvovaginal discomfort [Not Recovered/Not Resolved]
